FAERS Safety Report 12510238 (Version 3)
Quarter: 2017Q1

REPORT INFORMATION
  Report Type: Report from Study
  Country: US (occurrence: US)
  Receive Date: 20160629
  Receipt Date: 20170309
  Transmission Date: 20170428
  Serious: Yes (Hospitalization)
  Sender: FDA-Public Use
  Company Number: US-ACTELION-A-NJ2015-123598

PATIENT
  Age: 66 Year
  Sex: Female
  Weight: 72.11 kg

DRUGS (3)
  1. SILDENAFIL. [Concomitant]
     Active Substance: SILDENAFIL
     Indication: PULMONARY ARTERIAL HYPERTENSION
  2. ADCIRCA [Concomitant]
     Active Substance: TADALAFIL
  3. VELETRI [Suspect]
     Active Substance: EPOPROSTENOL
     Indication: PULMONARY ARTERIAL HYPERTENSION
     Dosage: 18 NG/KG, PER MIN
     Route: 042
     Dates: start: 20120928

REACTIONS (9)
  - Unevaluable event [Unknown]
  - Cataract operation [Unknown]
  - Rash macular [Not Recovered/Not Resolved]
  - Heart valve operation [Unknown]
  - Diarrhoea [Unknown]
  - Cataract [Unknown]
  - Nasopharyngitis [Unknown]
  - Sinusitis [Unknown]
  - Eye haemorrhage [Unknown]

NARRATIVE: CASE EVENT DATE: 20151203
